FAERS Safety Report 6112761-4 (Version None)
Quarter: 2009Q1

REPORT INFORMATION
  Report Type: 
  Country: None (occurrence: None)
  Receive Date: 20090310
  Receipt Date: 20090226
  Transmission Date: 20090719
  Serious: Yes (Hospitalization)
  Sender: FDA-Public Use
  Company Number: GXKR2009AT02635

PATIENT
  Age: 78 Year
  Sex: Female
  Weight: 95 kg

DRUGS (6)
  1. FUROHEXAL (NGX) (FUROSEMIDE) TABLET, 40MG [Suspect]
     Indication: HYPERTENSION
  2. SINTROM [Suspect]
     Indication: ATRIAL FIBRILLATION
  3. CONCOR COR (BISOPROLOL) FILM-COATED TABLET, 2.5 MG [Concomitant]
  4. KALIORAL (CITRIC ACID, POTASSIUM CARBONATE, POTASSIUM CITRATE) POWDER [Concomitant]
  5. NEXIUM (ESOMEPRAZOLE MAGNESIUM) GASTRO-RESISTANT TABLET, 40 MG [Concomitant]
  6. STABLON (TIANEPTINE) COATED TABLET [Concomitant]

REACTIONS (6)
  - COAGULATION TIME PROLONGED [None]
  - CONCUSSION [None]
  - FALL [None]
  - HYPOKALAEMIA [None]
  - SOMNOLENCE [None]
  - SYNCOPE [None]
